FAERS Safety Report 19029088 (Version 1)
Quarter: 2021Q1

REPORT INFORMATION
  Report Type: Spontaneous
  Country: GB (occurrence: GB)
  Receive Date: 20210319
  Receipt Date: 20210319
  Transmission Date: 20210420
  Serious: Yes (Other)
  Sender: FDA-Public Use
  Company Number: GB-BRISTOL-MYERS SQUIBB COMPANY-BMS-2021-026157

PATIENT
  Age: 79 Year
  Sex: Female
  Weight: 62.4 kg

DRUGS (5)
  1. APIXABAN [Suspect]
     Active Substance: APIXABAN
     Indication: PRODUCT USED FOR UNKNOWN INDICATION
     Dosage: 5 MG, TWO TO BE TAKEN TWICE DAILY FOR 7 DAYS, THEN ONE TWICE A DAY
     Route: 065
     Dates: start: 20210221
  2. ATORVASTATIN [Concomitant]
     Active Substance: ATORVASTATIN
     Indication: PRODUCT USED FOR UNKNOWN INDICATION
     Dosage: 10 MILLIGRAM, QD, AT NIGHT
     Route: 065
     Dates: start: 20210225
  3. COVID?19 VACCINE [Concomitant]
     Indication: COVID-19 IMMUNISATION
     Dosage: 1 DOSAGE FORM
     Route: 030
     Dates: start: 20210129, end: 20210129
  4. PREDNISOLONE. [Concomitant]
     Active Substance: PREDNISOLONE
     Indication: PRODUCT USED FOR UNKNOWN INDICATION
     Dosage: 5 MG, 2 TABLETS DAILY. REDUCE DOSE BY 2.5MG DAILY EVERY 2 WEEKS THEN STOP AS DIRECTED BY RHEUMNATOLO
     Route: 065
     Dates: start: 20201229, end: 20210210
  5. PREDNISOLONE. [Concomitant]
     Active Substance: PREDNISOLONE
     Dosage: 5 MG, TWO TABLETS IN THE MORNING FOR 4 DAYS, THEN REDUCE TO ONE TABLET IN THE MORNING
     Route: 065
     Dates: start: 20210225

REACTIONS (2)
  - Restless legs syndrome [Unknown]
  - Pulmonary embolism [Not Recovered/Not Resolved]

NARRATIVE: CASE EVENT DATE: 20210222
